FAERS Safety Report 5810519-4 (Version None)
Quarter: 2008Q3

REPORT INFORMATION
  Report Type: 
  Country: None (occurrence: None)
  Receive Date: 20080715
  Receipt Date: 20080707
  Transmission Date: 20090109
  Serious: Yes (Hospitalization, Other)
  Sender: FDA-Public Use
  Company Number: US-ELI_LILLY_AND_COMPANY-USA021022040

PATIENT
  Sex: Male
  Weight: 84.091 kg

DRUGS (6)
  1. HUMALOG [Suspect]
     Indication: DIABETES MELLITUS
     Dosage: 60 U, DAILY (1/D)
     Dates: start: 20020101
  2. HUMULIN R [Suspect]
     Indication: DIABETES MELLITUS
     Dosage: UNK, UNKNOWN
  3. HUMULIN R [Suspect]
     Dosage: UNK, UNKNOWN
     Dates: start: 20010901, end: 20021101
  4. IMODIUM [Concomitant]
     Dosage: UNK, UNKNOWN
  5. DETROL [Concomitant]
     Dosage: UNK, UNKNOWN
  6. ASPIRIN [Concomitant]
     Dosage: UNK, UNKNOWN

REACTIONS (9)
  - BLOOD GLUCOSE DECREASED [None]
  - BLOOD GLUCOSE INCREASED [None]
  - DYSSTASIA [None]
  - GALLBLADDER OPERATION [None]
  - HEART RATE INCREASED [None]
  - INCORRECT DOSE ADMINISTERED [None]
  - MOBILITY DECREASED [None]
  - MUSCLE DISORDER [None]
  - OVERDOSE [None]
